FAERS Safety Report 13030730 (Version 1)
Quarter: 2016Q4

REPORT INFORMATION
  Report Type: Spontaneous
  Country: US (occurrence: US)
  Receive Date: 20161215
  Receipt Date: 20161215
  Transmission Date: 20170207
  Serious: Yes (Other)
  Sender: FDA-Public Use
  Company Number: US-LPDUSPRD-20160673

PATIENT
  Age: 86 Year
  Sex: Male

DRUGS (3)
  1. RENVELA [Concomitant]
     Active Substance: SEVELAMER CARBONATE
  2. VENOFER [Suspect]
     Active Substance: IRON SUCROSE
     Dosage: 200 MG MONTHLY
     Route: 042
     Dates: start: 201510, end: 201607
  3. MERCED [Concomitant]

REACTIONS (1)
  - Pruritus [Not Recovered/Not Resolved]

NARRATIVE: CASE EVENT DATE: 201607
